FAERS Safety Report 17158272 (Version 3)
Quarter: 2020Q1

REPORT INFORMATION
  Report Type: Spontaneous
  Country: US (occurrence: US)
  Receive Date: 20191216
  Receipt Date: 20200122
  Transmission Date: 20200409
  Serious: No
  Sender: FDA-Public Use
  Company Number: US-PFIZER INC-2019537088

PATIENT
  Sex: Female

DRUGS (2)
  1. INDOMETHACIN. [Suspect]
     Active Substance: INDOMETHACIN
     Indication: INFLAMMATION
  2. INDOMETHACIN. [Suspect]
     Active Substance: INDOMETHACIN
     Indication: ANALGESIC THERAPY
     Dosage: UNK

REACTIONS (1)
  - Drug hypersensitivity [Unknown]
